FAERS Safety Report 8845390 (Version 1)
Quarter: 2012Q4

REPORT INFORMATION
  Report Type: 
  Country: US (occurrence: US)
  Receive Date: 20121017
  Receipt Date: 20121017
  Transmission Date: 20130627
  Serious: Yes (Other)
  Sender: FDA-Public Use
  Company Number: US-BAYER-2012-106642

PATIENT
  Sex: Female

DRUGS (4)
  1. GIANVI [Suspect]
     Indication: CONTRACEPTION
     Dosage: UNK
  2. GIANVI [Suspect]
     Indication: POLYCYSTIC OVARIES
  3. BEYAZ [Suspect]
     Indication: CONTRACEPTION
  4. BEYAZ [Suspect]
     Indication: POLYCYSTIC OVARIES

REACTIONS (2)
  - Genital haemorrhage [None]
  - Mood swings [None]
